FAERS Safety Report 6452758-8 (Version None)
Quarter: 2009Q4

REPORT INFORMATION
  Report Type: 
  Country: None (occurrence: None)
  Receive Date: 20091124
  Receipt Date: 20091112
  Transmission Date: 20100525
  Serious: Yes (Life-Threatening, Hospitalization)
  Sender: FDA-Public Use
  Company Number: FR-PFIZER INC-2009296498

PATIENT
  Age: 94 Year
  Sex: Female

DRUGS (8)
  1. TRIFLUCAN [Suspect]
     Dosage: UNK
     Route: 048
     Dates: start: 20090101
  2. PREVISCAN [Interacting]
     Dosage: UNK
     Route: 048
     Dates: start: 20090101, end: 20090814
  3. PREVISCAN [Interacting]
     Dosage: UNK
  4. ATHYMIL [Concomitant]
     Indication: DEPRESSION
     Dosage: 30 MG, 1X/DAY
     Route: 048
     Dates: start: 20050101
  5. COVERSYL [Concomitant]
     Dosage: UNK
     Route: 048
  6. RISPERDAL [Concomitant]
     Dosage: UNK
     Route: 048
  7. TARDYFERON [Concomitant]
     Indication: IRON DEFICIENCY ANAEMIA
     Dosage: UNK
     Route: 048
     Dates: start: 20050101
  8. TRANXENE [Concomitant]
     Dosage: UNK
     Route: 048
     Dates: start: 20050101

REACTIONS (2)
  - DRUG INTERACTION [None]
  - OVERDOSE [None]
